FAERS Safety Report 14379092 (Version 1)
Quarter: 2018Q1

REPORT INFORMATION
  Report Type: Spontaneous
  Country: GB (occurrence: GB)
  Receive Date: 20180112
  Receipt Date: 20180112
  Transmission Date: 20180509
  Serious: Yes (Other)
  Sender: FDA-Public Use
  Company Number: GB-CIPLA LTD.-2018GB00505

PATIENT

DRUGS (8)
  1. FEMSEVEN [Concomitant]
     Active Substance: ESTRADIOL\LEVONORGESTREL
     Dosage: UNK
     Route: 065
  2. OMEPRAZOLE. [Concomitant]
     Active Substance: OMEPRAZOLE
     Dosage: UNK
     Route: 065
  3. CETIRIZINE [Suspect]
     Active Substance: CETIRIZINE HYDROCHLORIDE
     Indication: ALLERGY TO ARTHROPOD BITE
     Dosage: 10 MG, UNK
     Route: 048
     Dates: start: 20171205, end: 20171205
  4. FUCIDIN [Concomitant]
     Active Substance: FUSIDIC ACID
     Indication: ARTHROPOD BITE
     Dosage: UNK
     Route: 065
  5. NOVORAPID [Concomitant]
     Active Substance: INSULIN ASPART
     Dosage: UNK
     Route: 065
  6. PREDNISOLONE. [Concomitant]
     Active Substance: PREDNISOLONE
     Dosage: 30 MG, FOR 3 DAYS ONLY
     Route: 065
  7. CREON [Concomitant]
     Active Substance: PANCRELIPASE AMYLASE\PANCRELIPASE LIPASE\PANCRELIPASE PROTEASE
     Dosage: UNK
     Route: 065
  8. ROSUVASTATIN CALCIUM. [Concomitant]
     Active Substance: ROSUVASTATIN CALCIUM
     Dosage: UNK
     Route: 065

REACTIONS (13)
  - Agitation [Recovered/Resolved]
  - Pharyngeal oedema [Not Recovered/Not Resolved]
  - Swollen tongue [Not Recovered/Not Resolved]
  - Dysphagia [Not Recovered/Not Resolved]
  - Dry mouth [Unknown]
  - Chest discomfort [Recovered/Resolved]
  - Dysgeusia [Not Recovered/Not Resolved]
  - Oral pain [Unknown]
  - Peripheral coldness [Unknown]
  - Eustachian tube disorder [Unknown]
  - Gingival pain [Not Recovered/Not Resolved]
  - Heart rate increased [Not Recovered/Not Resolved]
  - Oral discomfort [Unknown]

NARRATIVE: CASE EVENT DATE: 20171205
